FAERS Safety Report 21402207 (Version 2)
Quarter: 2022Q4

REPORT INFORMATION
  Report Type: Spontaneous
  Country: JP (occurrence: JP)
  Receive Date: 20221003
  Receipt Date: 20221013
  Transmission Date: 20230113
  Serious: Yes (Other)
  Sender: FDA-Public Use
  Company Number: JP-PFIZER INC-202101290518

PATIENT
  Age: 56 Year
  Sex: Male
  Weight: 119.2 kg

DRUGS (21)
  1. LITHIUM CARBONATE [Suspect]
     Active Substance: LITHIUM CARBONATE
     Indication: Product used for unknown indication
     Dosage: 200 MG, 4 TABLETS AFTER BREAKFAST AND DINNER
     Route: 065
  2. INSULIN GLARGINE [Suspect]
     Active Substance: INSULIN GLARGINE
     Indication: Diabetes mellitus
     Dosage: 38 DF(BEFORE BREAKFAST)
     Route: 058
  3. LIXISENATIDE [Suspect]
     Active Substance: LIXISENATIDE
     Indication: Diabetes mellitus
     Dosage: 20 UG (BEFORE BREAKFAST)
     Route: 058
  4. PIOGLITAZONE [Suspect]
     Active Substance: PIOGLITAZONE
     Indication: Diabetes mellitus
     Dosage: 15 MG, 1 TABLET AFTER BREAKFAST
     Route: 065
  5. METFORMIN HYDROCHLORIDE [Suspect]
     Active Substance: METFORMIN HYDROCHLORIDE
     Indication: Diabetes mellitus
     Dosage: 250 MG, PC (250 MG, 9 TABLETS AFTER EACH MEAL)
     Route: 065
  6. EMPAGLIFLOZIN [Suspect]
     Active Substance: EMPAGLIFLOZIN
     Indication: Diabetes mellitus
     Dosage: 25 MG, 1 TABLET AFTER BREAKFAST
     Route: 065
  7. AZELNIDIPINE\OLMESARTAN MEDOXOMIL [Concomitant]
     Active Substance: AZELNIDIPINE\OLMESARTAN MEDOXOMIL
     Dosage: OLMESARTAN MEDOXOMIL (20 MG), AZELNIDIPINE (16 MG) (1 COMBINATION TABLET AFTER BREAKFAST)
  8. AZELNIDIPINE\OLMESARTAN MEDOXOMIL [Concomitant]
     Active Substance: AZELNIDIPINE\OLMESARTAN MEDOXOMIL
     Dosage: 25 MG
  9. VERAPAMIL HYDROCHLORIDE [Concomitant]
     Active Substance: VERAPAMIL HYDROCHLORIDE
     Indication: Product used for unknown indication
     Dosage: 40 MG, PC (3 TABLETS AFTER EACH MEAL)
     Route: 065
  10. AMITRIPTYLINE HYDROCHLORIDE [Concomitant]
     Active Substance: AMITRIPTYLINE HYDROCHLORIDE
     Indication: Product used for unknown indication
     Dosage: 25 MG, 3 TABLETS AFTER BREAKFAST, LUNCH, AND DINNER
     Route: 065
  11. ALPRAZOLAM [Concomitant]
     Active Substance: ALPRAZOLAM
     Indication: Product used for unknown indication
     Dosage: 0.4 MG (3 TABLETS, AFTER EACH MEAL)
     Route: 065
  12. ALPRAZOLAM [Concomitant]
     Active Substance: ALPRAZOLAM
     Dosage: 0.8 MG (1 TABLET, BEFORE BEDTIME)
     Route: 065
  13. ARIPIPRAZOLE [Concomitant]
     Active Substance: ARIPIPRAZOLE
     Indication: Product used for unknown indication
     Dosage: 3 ML, BEFORE BEDTIME
     Route: 065
  14. TRIAZOLAM [Concomitant]
     Active Substance: TRIAZOLAM
     Indication: Product used for unknown indication
     Dosage: 0.25 MG, 1 TABLET BEFORE SLEEP
     Route: 065
  15. DULOXETINE HYDROCHLORIDE [Concomitant]
     Active Substance: DULOXETINE HYDROCHLORIDE
     Indication: Product used for unknown indication
     Dosage: 30 MG, 2 CAPSULES BEFORE SLEEP
     Route: 065
  16. TRAZODONE HYDROCHLORIDE [Concomitant]
     Active Substance: TRAZODONE HYDROCHLORIDE
     Indication: Product used for unknown indication
     Dosage: 50 MG, 2 TABLETS BEFORE SLEEP
  17. EDOXABAN [Concomitant]
     Active Substance: EDOXABAN
     Dosage: UNK
  18. BISOPROLOL [Concomitant]
     Active Substance: BISOPROLOL
     Dosage: UNK
  19. PROPAFENONE [Concomitant]
     Active Substance: PROPAFENONE
     Dosage: UNK
  20. FEBUXOSTAT [Concomitant]
     Active Substance: FEBUXOSTAT
     Dosage: 10 MG
  21. FEBUXOSTAT [Concomitant]
     Active Substance: FEBUXOSTAT
     Dosage: 20 MG

REACTIONS (4)
  - Toxicity to various agents [Unknown]
  - Hypotension [Unknown]
  - Bradycardia [Unknown]
  - Drug ineffective [Unknown]
